FAERS Safety Report 9853870 (Version 1)
Quarter: 2014Q1

REPORT INFORMATION
  Report Type: Spontaneous
  Country: US (occurrence: US)
  Receive Date: 20140129
  Receipt Date: 20140129
  Transmission Date: 20141002
  Serious: Yes (Other)
  Sender: FDA-Public Use
  Company Number: CHPA2014US001308

PATIENT
  Age: 72 Year
  Sex: Female

DRUGS (3)
  1. EXCEDRIN UNKNOWN [Suspect]
     Indication: PAIN
     Dosage: 2 DF, QD
  2. COREG [Concomitant]
     Indication: CARDIAC DISORDER
  3. NEXIUM//ESOMEPRAZOLE SODIUM [Concomitant]
     Indication: GASTROOESOPHAGEAL REFLUX DISEASE

REACTIONS (6)
  - Road traffic accident [Unknown]
  - Arthritis [Unknown]
  - Headache [Unknown]
  - Back pain [Unknown]
  - Incorrect drug administration duration [Unknown]
  - Therapeutic response decreased [Unknown]
